FAERS Safety Report 14954071 (Version 1)
Quarter: 2018Q2

REPORT INFORMATION
  Report Type: Spontaneous
  Country: FR (occurrence: FR)
  Receive Date: 20180530
  Receipt Date: 20180530
  Transmission Date: 20180711
  Serious: Yes (Other)
  Sender: FDA-Public Use
  Company Number: FR-BAYER-2018-098780

PATIENT
  Age: 42 Year
  Sex: Male

DRUGS (2)
  1. PYRAZINAMIDE. [Suspect]
     Active Substance: PYRAZINAMIDE
     Indication: ANTIBIOTIC PROPHYLAXIS
     Dosage: 2000 MG, UNK
     Route: 048
  2. IZILOX [Suspect]
     Active Substance: MOXIFLOXACIN HYDROCHLORIDE
     Indication: ANTIBIOTIC PROPHYLAXIS
     Dosage: 400 MG, UNK
     Route: 048

REACTIONS (5)
  - Nausea [Unknown]
  - Disturbance in attention [Unknown]
  - Insomnia [Unknown]
  - Dizziness [Unknown]
  - Sense of oppression [Unknown]

NARRATIVE: CASE EVENT DATE: 20180106
